FAERS Safety Report 20568636 (Version 8)
Quarter: 2022Q2

REPORT INFORMATION
  Report Type: Report from Study
  Country: MX (occurrence: None)
  Receive Date: 20220308
  Receipt Date: 20220415
  Transmission Date: 20220721
  Serious: Yes (Hospitalization)
  Sender: FDA-Public Use
  Company Number: MX-Eisai Medical Research-EC-2022-108156

PATIENT
  Age: 56 Year
  Sex: Male
  Weight: 96.8 kg

DRUGS (14)
  1. LENVATINIB [Suspect]
     Active Substance: LENVATINIB
     Indication: Clear cell renal cell carcinoma
     Route: 048
     Dates: start: 20211223, end: 20220130
  2. QUAVONLIMAB [Suspect]
     Active Substance: QUAVONLIMAB
     Indication: Clear cell renal cell carcinoma
     Dosage: QUAVONLIMAB 25 MG (+) PEMBROLIZUMAB 400 MG, (425 MG)
     Route: 041
     Dates: start: 20211223, end: 20211223
  3. SENNOSIDES [Concomitant]
     Active Substance: SENNOSIDES
     Dates: start: 20220102, end: 20220209
  4. ENALAPRIL [Concomitant]
     Active Substance: ENALAPRIL
     Dates: start: 202109
  5. RIVAROXABAN [Concomitant]
     Active Substance: RIVAROXABAN
     Dates: start: 20211109
  6. PREDNISONE [Concomitant]
     Active Substance: PREDNISONE
     Dates: start: 20211122, end: 20220131
  7. OMEPRAZOLE [Concomitant]
     Active Substance: OMEPRAZOLE
     Dates: start: 20211122, end: 20220210
  8. ACETAMINOPHEN [Concomitant]
     Active Substance: ACETAMINOPHEN
     Dates: start: 20211220, end: 20220209
  9. MORPHINE [Concomitant]
     Active Substance: MORPHINE
     Dates: start: 20211227
  10. AMLODIPINE [Concomitant]
     Active Substance: AMLODIPINE BESYLATE
     Dates: start: 20220102
  11. LACTULOSE [Concomitant]
     Active Substance: LACTULOSE
     Dates: start: 20220102, end: 20220208
  12. DEXKETOPROFEN [Concomitant]
     Active Substance: DEXKETOPROFEN
     Dates: start: 20220109, end: 20220209
  13. CHLORAMPHENICOL;COLLAGENASE [Concomitant]
     Dates: start: 20220127, end: 20220223
  14. PEMBROLIZUMAB [Suspect]
     Active Substance: PEMBROLIZUMAB

REACTIONS (2)
  - Abdominal distension [Recovered/Resolved]
  - Drug-induced liver injury [Recovered/Resolved]

NARRATIVE: CASE EVENT DATE: 20220128
